FAERS Safety Report 4507033-5 (Version None)
Quarter: 2004Q4

REPORT INFORMATION
  Report Type: 
  Country: None (occurrence: None)
  Receive Date: 20041117
  Receipt Date: 20041110
  Transmission Date: 20050328
  Serious: Yes (Death, Life-Threatening)
  Sender: FDA-Public Use
  Company Number: 2004AP05718

PATIENT
  Age: 69 Year
  Sex: Female
  Weight: 65 kg

DRUGS (6)
  1. OMEPRAZOLE [Suspect]
     Indication: OESOPHAGEAL DISORDER
     Dosage: 20 MG DAILY PO
     Route: 048
     Dates: end: 20040510
  2. AMIODARONE HYDROCHLORIDE [Suspect]
     Indication: ARRHYTHMIA
     Dosage: 20 MG DAILY
     Dates: start: 20040301, end: 20040510
  3. VALPROATE SODIUM [Suspect]
     Indication: EPILEPSY
     Dosage: 1 G DAILY PO
     Route: 048
     Dates: start: 20040229, end: 20040510
  4. WARFARIN SODIUM [Suspect]
     Indication: ARRHYTHMIA
     Dosage: 1 MG DAILY PO
     Route: 048
     Dates: start: 20040301, end: 20040510
  5. NEO-MERCAZOLE TAB [Suspect]
     Indication: HYPERTHYROIDISM
     Dosage: 15 MG DAILY PO
     Route: 048
     Dates: start: 20040301, end: 20040510
  6. DILANTIN [Suspect]
     Indication: EPILEPSY
     Dosage: 300 MG DAILY
     Dates: start: 20040301, end: 20040510

REACTIONS (11)
  - BLINDNESS UNILATERAL [None]
  - BLOOD PRESSURE DECREASED [None]
  - CARDIOMEGALY [None]
  - COMA HEPATIC [None]
  - DELIRIUM [None]
  - DYSPNOEA EXERTIONAL [None]
  - HEPATIC ENCEPHALOPATHY [None]
  - HEPATIC FAILURE [None]
  - HEPATORENAL SYNDROME [None]
  - HYPERTHYROIDISM [None]
  - LOSS OF CONSCIOUSNESS [None]
